FAERS Safety Report 11171983 (Version 1)
Quarter: 2015Q2

REPORT INFORMATION
  Report Type: Spontaneous
  Country: US (occurrence: US)
  Receive Date: 20150608
  Receipt Date: 20150608
  Transmission Date: 20150821
  Serious: No
  Sender: FDA-Public Use
  Company Number: US-TARO-2014TAR00622

PATIENT
  Age: 4 Year
  Sex: Female
  Weight: 14.06 kg

DRUGS (7)
  1. ALBUTEROL. [Concomitant]
     Active Substance: ALBUTEROL
  2. CHILDRENS CETIRIZINE HYDROCHLORIDE SUGAR FREE GRAPE [Suspect]
     Active Substance: CETIRIZINE HYDROCHLORIDE
     Indication: MULTIPLE ALLERGIES
     Dosage: 1 TSP, 1X/DAY
     Route: 048
     Dates: start: 2012
  3. MULTIVITAMIN [Concomitant]
     Active Substance: VITAMINS
  4. CULTURELLE [Concomitant]
     Active Substance: LACTOBACILLUS RHAMNOSUS
  5. SINGULAIR [Concomitant]
     Active Substance: MONTELUKAST SODIUM
  6. ADVAIR HFA [Concomitant]
     Active Substance: FLUTICASONE PROPIONATE\SALMETEROL XINAFOATE
  7. CHILDRENS CETIRIZINE HYDROCHLORIDE SUGAR FREE GRAPE [Suspect]
     Active Substance: CETIRIZINE HYDROCHLORIDE
     Indication: SEASONAL ALLERGY

REACTIONS (2)
  - Coeliac disease [Not Recovered/Not Resolved]
  - Drug ineffective [Unknown]

NARRATIVE: CASE EVENT DATE: 20141210
